FAERS Safety Report 4467781-2 (Version None)
Quarter: 2004Q4

REPORT INFORMATION
  Report Type: 
  Country: None (occurrence: None)
  Receive Date: 20041004
  Receipt Date: 20041004
  Transmission Date: 20050328
  Serious: Yes (Life-Threatening, Hospitalization, Other)
  Sender: FDA-Public Use
  Company Number: None

PATIENT
  Age: 34 Year
  Sex: Male
  Weight: 63.5036 kg

DRUGS (2)
  1. LORAZEPAM [Suspect]
     Indication: ANXIETY
     Dosage: 1 4 TIMES ORAL
     Route: 048
     Dates: start: 20040517, end: 20040702
  2. ZOLOFT [Suspect]
     Indication: SUICIDE ATTEMPT
     Dosage: 1.5 DAILY ORAL
     Route: 048
     Dates: start: 20040609, end: 20040703

REACTIONS (9)
  - ABNORMAL BEHAVIOUR [None]
  - AGITATION [None]
  - INCOHERENT [None]
  - INTENTIONAL SELF-INJURY [None]
  - MEMORY IMPAIRMENT [None]
  - POISONING [None]
  - REPETITIVE SPEECH [None]
  - SUICIDAL IDEATION [None]
  - TREATMENT NONCOMPLIANCE [None]
